FAERS Safety Report 23918702 (Version 1)
Quarter: 2024Q2

REPORT INFORMATION
  Report Type: Spontaneous
  Country: US (occurrence: GB)
  Receive Date: 20240530
  Receipt Date: 20240530
  Transmission Date: 20240715
  Serious: Yes (Other)
  Sender: FDA-Public Use
  Company Number: US-ROCHE-3569310

PATIENT
  Age: 80 Year
  Sex: Female

DRUGS (4)
  1. VABYSMO [Suspect]
     Active Substance: FARICIMAB\FARICIMAB-SVOA
     Indication: Neovascular age-related macular degeneration
     Route: 065
  2. AFLIBERCEPT [Suspect]
     Active Substance: AFLIBERCEPT
     Indication: Product used for unknown indication
     Route: 065
  3. CYCLOPENTOLATE [Concomitant]
     Active Substance: CYCLOPENTOLATE
  4. MAXIDEX [Concomitant]
     Active Substance: DEXAMETHASONE

REACTIONS (3)
  - Vitreous opacities [Unknown]
  - Corneal disorder [Unknown]
  - Iridocyclitis [Unknown]

NARRATIVE: CASE EVENT DATE: 20230308
